FAERS Safety Report 21564145 (Version 1)
Quarter: 2022Q4

REPORT INFORMATION
  Report Type: Spontaneous
  Country: ET (occurrence: ET)
  Receive Date: 20221108
  Receipt Date: 20221108
  Transmission Date: 20230112
  Serious: Yes (Other)
  Sender: FDA-Public Use
  Company Number: ET-002147023-NVSC2022ET246665

PATIENT
  Sex: Male

DRUGS (1)
  1. GLIVEC [Suspect]
     Active Substance: IMATINIB MESYLATE
     Indication: Gastrointestinal stromal tumour
     Dosage: 400 MG, (4 X 100MG TABLETS)
     Route: 065

REACTIONS (3)
  - Pulmonary mass [Unknown]
  - Respiratory disorder [Unknown]
  - Gastrointestinal cancer metastatic [Unknown]
